FAERS Safety Report 9292842 (Version 1)
Quarter: 2013Q1

REPORT INFORMATION
  Report Type: Spontaneous
  Country: US (occurrence: None)
  Receive Date: 20121214
  Receipt Date: 20121214
  Transmission Date: 20140127
  Serious: Yes (Hospitalization)
  Sender: FDA-Public Use
  Company Number: 1205USA01653

PATIENT
  Sex: Male

DRUGS (1)
  1. JANUVIA (SITAGLIPTIN PHOSPHATE)FILM-COATED TABLET [Suspect]
     Indication: TYPE 2 DIABETES MELLITUS
     Route: 048
     Dates: start: 201202, end: 20120508

REACTIONS (2)
  - Pancreatitis [None]
  - Off label use [None]
